FAERS Safety Report 9449856 (Version 2)
Quarter: 2013Q3

REPORT INFORMATION
  Report Type: Spontaneous
  Country: US (occurrence: US)
  Receive Date: 20130809
  Receipt Date: 20130828
  Transmission Date: 20140515
  Serious: Yes (Other)
  Sender: FDA-Public Use
  Company Number: PHEH2013US016742

PATIENT
  Sex: Female

DRUGS (4)
  1. EXTAVIA [Suspect]
     Indication: MULTIPLE SCLEROSIS
     Dosage: 0.3 MG, UNK
     Route: 058
     Dates: start: 20130706
  2. EXTAVIA [Suspect]
     Dosage: UNK UKN, UNK
     Route: 058
     Dates: start: 20130826
  3. CALCIUM [Concomitant]
     Dosage: UNK UKN, UNK
  4. MULTI-VIT [Concomitant]
     Dosage: UNK UKN, UNK

REACTIONS (5)
  - Feeling hot [Unknown]
  - Thrombosis [Unknown]
  - Rash [Unknown]
  - Injection site erythema [Unknown]
  - Injection site bruising [Unknown]
